FAERS Safety Report 8355430 (Version 3)
Quarter: 2012Q4

REPORT INFORMATION
  Report Type: 
  Country: US (occurrence: US)
  Receive Date: 20120126
  Receipt Date: 20120924
  Transmission Date: 20130627
  Serious: Yes (Hospitalization)
  Sender: FDA-Public Use
  Company Number: US-BAYER-2012-006481

PATIENT
  Age: 34 Year
  Sex: Female
  Weight: 89.34 kg

DRUGS (7)
  1. YAZ [Suspect]
     Indication: PREMENSTRUAL SYNDROME
     Dosage: UNK
     Dates: start: 2007
  2. YAZ [Suspect]
     Indication: POLYCYSTIC OVARIES
     Dosage: UNK
     Dates: start: 20090416, end: 20090515
  3. OCELLA [Suspect]
     Indication: PREMENSTRUAL SYNDROME
     Dosage: UNK
     Dates: start: 20091201, end: 20100316
  4. NEXIUM [Concomitant]
     Dosage: 40 mg, QD
     Route: 048
     Dates: start: 20100308
  5. ACYCLOVIR [ACICLOVIR] [Concomitant]
     Indication: ORAL HERPES
     Dosage: 200 mg, UNK
     Route: 048
     Dates: start: 20100214
  6. PERCOCET [Concomitant]
  7. COLACE [Concomitant]

REACTIONS (6)
  - Pulmonary embolism [None]
  - Deep vein thrombosis [None]
  - Pain [None]
  - Injury [None]
  - Anxiety [None]
  - Oedema peripheral [None]
